FAERS Safety Report 14679487 (Version 1)
Quarter: 2018Q1

REPORT INFORMATION
  Report Type: Spontaneous
  Country: TW (occurrence: TW)
  Receive Date: 20180326
  Receipt Date: 20180326
  Transmission Date: 20180509
  Serious: Yes (Other)
  Sender: FDA-Public Use
  Company Number: TW-ACS-001046

PATIENT
  Age: 2 Year
  Sex: Male

DRUGS (4)
  1. CEFTRIAXONE. [Suspect]
     Active Substance: CEFTRIAXONE
     Indication: PYREXIA
     Route: 042
  2. DICLOFENAC SODIUM. [Interacting]
     Active Substance: DICLOFENAC SODIUM
     Indication: PYREXIA
     Dosage: 1.6 MG X KG^-1 X DAY^-1
     Route: 065
  3. CEPHALEXIN. [Interacting]
     Active Substance: CEPHALEXIN
     Indication: PYREXIA
     Route: 065
  4. ACETAMINOPHEN. [Concomitant]
     Active Substance: ACETAMINOPHEN
     Indication: PYREXIA
     Route: 065

REACTIONS (2)
  - Drug interaction [Recovered/Resolved]
  - Large intestine perforation [Recovered/Resolved]
